FAERS Safety Report 7443237-X (Version None)
Quarter: 2011Q2

REPORT INFORMATION
  Report Type: 
  Country: None (occurrence: None)
  Receive Date: 20110428
  Receipt Date: 20110420
  Transmission Date: 20111010
  Serious: Yes (Hospitalization)
  Sender: FDA-Public Use
  Company Number: B0714909A

PATIENT
  Age: 61 Year
  Sex: Female
  Weight: 52 kg

DRUGS (4)
  1. EURODIN [Concomitant]
     Dosage: 2MG PER DAY
     Route: 048
     Dates: start: 20050117, end: 20101229
  2. ALKERAN [Suspect]
     Indication: STEM CELL TRANSPLANT
     Dosage: 150MG PER DAY
     Route: 042
     Dates: start: 20050809, end: 20050810
  3. PROTECADIN [Concomitant]
     Dosage: 20MG PER DAY
     Route: 048
     Dates: start: 20050726, end: 20050814
  4. SEROTONE [Concomitant]
     Dosage: 10MG PER DAY
     Route: 042
     Dates: start: 20050809, end: 20050810

REACTIONS (1)
  - FEBRILE NEUTROPENIA [None]
